FAERS Safety Report 7357263-2 (Version None)
Quarter: 2011Q1

REPORT INFORMATION
  Report Type: 
  Country: None (occurrence: None)
  Receive Date: 20110311
  Receipt Date: 20110311
  Transmission Date: 20110831
  Serious: Yes (Hospitalization)
  Sender: FDA-Public Use
  Company Number: None

PATIENT
  Age: 69 Year
  Sex: Male

DRUGS (1)
  1. PRADAXA [Suspect]
     Indication: ATRIAL FIBRILLATION
     Dosage: 150MG BID PO
     Route: 048
     Dates: start: 20101201, end: 20110309

REACTIONS (5)
  - HAEMORRHAGIC STROKE [None]
  - TREATMENT NONCOMPLIANCE [None]
  - CEREBROVASCULAR ACCIDENT [None]
  - TREATMENT FAILURE [None]
  - BASAL GANGLIA HAEMORRHAGE [None]
